FAERS Safety Report 11941845 (Version 3)
Quarter: 2016Q1

REPORT INFORMATION
  Report Type: Spontaneous
  Country: IT (occurrence: IT)
  Receive Date: 20160124
  Receipt Date: 20160201
  Transmission Date: 20160526
  Serious: Yes (Disabling, Other)
  Sender: FDA-Public Use
  Company Number: PHHY2016IT008442

PATIENT
  Age: 61 Year
  Sex: Male
  Weight: 60 kg

DRUGS (6)
  1. SANDIMMUN [Suspect]
     Active Substance: CYCLOSPORINE
     Dosage: UNK
     Route: 042
     Dates: end: 20151125
  2. FLUDARABINE TEVA [Suspect]
     Active Substance: FLUDARABINE PHOSPHATE
     Indication: ACUTE MYELOID LEUKAEMIA
     Dosage: 85.5 MG/MQ, QD
     Route: 042
     Dates: start: 20151012, end: 20151014
  3. TEPADINA [Concomitant]
     Active Substance: THIOTEPA
     Indication: ADJUVANT THERAPY
     Dosage: 295 MG/MQ
     Route: 042
     Dates: start: 20151010, end: 20151011
  4. SANDIMMUN [Suspect]
     Active Substance: CYCLOSPORINE
     Indication: TRANSPLANT
     Dosage: 120 MG, QD
     Route: 042
     Dates: start: 20151015
  5. METHOTREXATE [Concomitant]
     Active Substance: METHOTREXATE
     Indication: ADJUVANT THERAPY
     Dosage: 43 MG, UNK
     Route: 042
     Dates: start: 20151017, end: 20151022
  6. BUSILVEX [Concomitant]
     Active Substance: BUSULFAN
     Indication: ADJUVANT THERAPY
     Dosage: 190 MG/MQ
     Route: 042
     Dates: start: 20151012, end: 20151013

REACTIONS (7)
  - Tremor [Unknown]
  - Encephalopathy [Not Recovered/Not Resolved]
  - Coma [Not Recovered/Not Resolved]
  - Carotid artery aneurysm [Unknown]
  - Leukoencephalopathy [Unknown]
  - Hypertension [Unknown]
  - Confusional state [Unknown]

NARRATIVE: CASE EVENT DATE: 20151108
